FAERS Safety Report 18605810 (Version 2)
Quarter: 2021Q1

REPORT INFORMATION
  Report Type: Spontaneous
  Country: BR (occurrence: BR)
  Receive Date: 20201211
  Receipt Date: 20210107
  Transmission Date: 20210419
  Serious: Yes (Other)
  Sender: FDA-Public Use
  Company Number: BR-TAKEDA-2020TUS049622

PATIENT

DRUGS (1)
  1. VENVANSE [Suspect]
     Active Substance: LISDEXAMFETAMINE DIMESYLATE
     Indication: ATTENTION DEFICIT HYPERACTIVITY DISORDER
     Route: 065

REACTIONS (13)
  - Near death experience [Unknown]
  - Dysstasia [Unknown]
  - Depression [Unknown]
  - Fear of death [Unknown]
  - Condition aggravated [Unknown]
  - Drug ineffective [Unknown]
  - Nausea [Unknown]
  - Sitting disability [Unknown]
  - Feeling abnormal [Unknown]
  - Anhedonia [Unknown]
  - Communication disorder [Unknown]
  - Motion sickness [Unknown]
  - Drug dependence [Unknown]
